FAERS Safety Report 17791046 (Version 3)
Quarter: 2020Q2

REPORT INFORMATION
  Report Type: Spontaneous
  Country: US (occurrence: US)
  Receive Date: 20200514
  Receipt Date: 20200604
  Transmission Date: 20200714
  Serious: No
  Sender: FDA-Public Use
  Company Number: US-009507513-2005USA003481

PATIENT
  Age: 25 Year
  Sex: Female
  Weight: 92.06 kg

DRUGS (2)
  1. NEXPLANON [Suspect]
     Active Substance: ETONOGESTREL
     Dosage: 1 IMPLANT
     Route: 059
     Dates: end: 20200316
  2. NEXPLANON [Suspect]
     Active Substance: ETONOGESTREL
     Dosage: 1 IMPLANT
     Route: 059
     Dates: start: 20200316, end: 20200508

REACTIONS (4)
  - Pain in extremity [Unknown]
  - Device kink [Recovered/Resolved]
  - Implant site pain [Unknown]
  - Depression [Unknown]

NARRATIVE: CASE EVENT DATE: 2020
